FAERS Safety Report 8225669-5 (Version None)
Quarter: 2012Q1

REPORT INFORMATION
  Report Type: 
  Country: None (occurrence: None)
  Receive Date: 20120319
  Receipt Date: 20120305
  Transmission Date: 20120608
  Serious: Yes (Hospitalization, Disabling, Other)
  Sender: FDA-Public Use
  Company Number: 2009AL005120

PATIENT
  Age: 60 Year
  Sex: Male
  Weight: 86.4102 kg

DRUGS (33)
  1. VASOTEC [Concomitant]
  2. FUROSEMIDE [Concomitant]
  3. AMARYL [Concomitant]
  4. ENALAPRIL MALEATE [Concomitant]
  5. ZOFRAN [Concomitant]
  6. GLIPIZIDE [Concomitant]
  7. LEVITRA [Concomitant]
  8. FLOXIN [Concomitant]
  9. MAGNESIUM OXIDE [Concomitant]
  10. GLIMEPIRIDE [Concomitant]
  11. NEO/POLYB/HC [Concomitant]
  12. METFORMIN HCL [Concomitant]
  13. TRICOR [Concomitant]
  14. FERROUS SULFATE TAB [Concomitant]
  15. LISINOPRIL [Concomitant]
  16. NIASPAN [Concomitant]
  17. LANTUS [Concomitant]
  18. CORTISPORIN [Concomitant]
  19. FERROUS FUMARATE [Concomitant]
  20. COREG [Concomitant]
  21. AVANDIA [Concomitant]
  22. JANUVIA [Concomitant]
  23. CARVEDILOL [Concomitant]
  24. ASPIRIN [Concomitant]
  25. TRICOR [Concomitant]
  26. POTASSIUM CHLORIDE [Concomitant]
  27. RANITIDINE [Concomitant]
  28. CIPRODEX [Concomitant]
  29. AMLODIPINE [Concomitant]
  30. SIMVASTATIN [Concomitant]
  31. DIGOXIN [Suspect]
     Dosage: 0.25 MG';QD;PO
     Route: 048
     Dates: start: 20080708, end: 20090908
  32. OMEPRAZOLE [Concomitant]
  33. FLEXTRA [Concomitant]

REACTIONS (23)
  - DRUG HYPERSENSITIVITY [None]
  - HYPOVOLAEMIA [None]
  - HYPOGLYCAEMIA [None]
  - PROTEINURIA [None]
  - BLOOD PRESSURE DIASTOLIC DECREASED [None]
  - OEDEMA PERIPHERAL [None]
  - ABDOMINAL DISCOMFORT [None]
  - LEFT VENTRICULAR HYPERTROPHY [None]
  - DECREASED APPETITE [None]
  - HYPOPHAGIA [None]
  - TREATMENT NONCOMPLIANCE [None]
  - DEHYDRATION [None]
  - RENAL FAILURE ACUTE [None]
  - OTITIS EXTERNA [None]
  - BACK PAIN [None]
  - ABDOMINAL PAIN LOWER [None]
  - NAUSEA [None]
  - NECK PAIN [None]
  - TOXICITY TO VARIOUS AGENTS [None]
  - BLOOD GLUCOSE INCREASED [None]
  - DIABETES MELLITUS INADEQUATE CONTROL [None]
  - VOMITING [None]
  - VITAMIN D DEFICIENCY [None]
